FAERS Safety Report 18975580 (Version 3)
Quarter: 2021Q2

REPORT INFORMATION
  Report Type: Spontaneous
  Country: US (occurrence: US)
  Receive Date: 20210306
  Receipt Date: 20210611
  Transmission Date: 20210717
  Serious: Yes (Hospitalization, Other)
  Sender: FDA-Public Use
  Company Number: US-TEVA-2021-US-1886443

PATIENT
  Age: 60 Year
  Sex: Male

DRUGS (1)
  1. PROAIR HFA [Suspect]
     Active Substance: ALBUTEROL SULFATE
     Dosage: DOSE: 90
     Route: 065

REACTIONS (4)
  - Dyspnoea [Unknown]
  - Product supply issue [Unknown]
  - Carbon dioxide increased [Unknown]
  - Near death experience [Recovered/Resolved]

NARRATIVE: CASE EVENT DATE: 2021
